FAERS Safety Report 17739982 (Version 1)
Quarter: 2020Q2

REPORT INFORMATION
  Report Type: Spontaneous
  Country: US (occurrence: US)
  Receive Date: 20200502
  Receipt Date: 20200502
  Transmission Date: 20200714
  Serious: No
  Sender: FDA-Public Use
  Company Number: None

PATIENT
  Age: 46 Year
  Sex: Female
  Weight: 72 kg

DRUGS (2)
  1. LEXAPRO [Concomitant]
     Active Substance: ESCITALOPRAM OXALATE
  2. BUPROPION XL 300 MG TAB [Suspect]
     Active Substance: BUPROPION HYDROCHLORIDE
     Indication: DEPRESSION
     Route: 048
     Dates: start: 20200403

REACTIONS (6)
  - Bruxism [None]
  - Product quality issue [None]
  - Orgasmic sensation decreased [None]
  - Headache [None]
  - Depression [None]
  - Libido decreased [None]

NARRATIVE: CASE EVENT DATE: 20200423
